FAERS Safety Report 4309327-5 (Version None)
Quarter: 2004Q1

REPORT INFORMATION
  Report Type: 
  Country: None (occurrence: None)
  Receive Date: 20040302
  Receipt Date: 20040218
  Transmission Date: 20041129
  Serious: Yes (Death)
  Sender: FDA-Public Use
  Company Number: TW-GLAXOSMITHKLINE-B0323882A

PATIENT
  Age: 69 Year
  Sex: Male
  Weight: 80 kg

DRUGS (6)
  1. LAMICTAL [Suspect]
     Indication: BIPOLAR DISORDER
     Dosage: 100MG TWICE PER DAY
     Route: 048
     Dates: start: 20031218, end: 20040115
  2. FLUDIAZEPAM [Concomitant]
     Dosage: .5MG PER DAY
  3. ALUMINUM HYDROXIDE + HOMATROPINE METHYLBROMIDE [Concomitant]
  4. VITAMIN B COMPLEX CAP [Concomitant]
     Route: 048
  5. INDERAL [Concomitant]
     Dosage: 20MG TWICE PER DAY
     Route: 048
     Dates: start: 20031127, end: 20040115
  6. PROPRANOLOL [Concomitant]
     Dosage: 350MG PER DAY
     Route: 048

REACTIONS (7)
  - ALANINE AMINOTRANSFERASE INCREASED [None]
  - ASPARTATE AMINOTRANSFERASE INCREASED [None]
  - MULTI-ORGAN FAILURE [None]
  - PYREXIA [None]
  - RASH GENERALISED [None]
  - REFUSAL OF TREATMENT BY PATIENT [None]
  - TOXIC EPIDERMAL NECROLYSIS [None]
